FAERS Safety Report 9135907 (Version 1)
Quarter: 2013Q1

REPORT INFORMATION
  Report Type: Spontaneous
  Country: US (occurrence: US)
  Receive Date: 20130304
  Receipt Date: 20130304
  Transmission Date: 20140127
  Serious: No
  Sender: FDA-Public Use
  Company Number: US-ABBOTT-12P-163-0918123-00

PATIENT
  Sex: Male
  Weight: 113.5 kg

DRUGS (5)
  1. ANDROGEL 1% [Suspect]
     Indication: BLOOD TESTOSTERONE DECREASED
     Dosage: ONE PACKET ONCE DAILY
     Route: 062
     Dates: start: 201009, end: 201108
  2. ANDROGEL 1% [Suspect]
     Dosage: TWO 5 GM PACKETS DAILY = 10 GM
     Route: 062
     Dates: start: 201108, end: 201109
  3. ANDROGEL 1% [Suspect]
     Dosage: ONE PACKET DAILY
     Route: 062
     Dates: start: 201109
  4. LEVOXYL [Concomitant]
     Indication: HYPOTHYROIDISM
  5. HYDROCORTIZONE [Concomitant]
     Indication: HYPOPITUITARISM

REACTIONS (4)
  - Blood testosterone decreased [Recovered/Resolved]
  - Blood testosterone increased [Recovered/Resolved]
  - Wrong technique in drug usage process [Recovered/Resolved]
  - Wrong technique in drug usage process [Unknown]
